FAERS Safety Report 20475644 (Version 4)
Quarter: 2022Q2

REPORT INFORMATION
  Report Type: Report from Study
  Country: CA (occurrence: CA)
  Receive Date: 20220215
  Receipt Date: 20220610
  Transmission Date: 20220721
  Serious: Yes (Hospitalization)
  Sender: FDA-Public Use
  Company Number: CA-JNJFOC-20211014771

PATIENT
  Age: 19 Year
  Sex: Female
  Weight: 79 kg

DRUGS (5)
  1. REMICADE [Suspect]
     Active Substance: INFLIXIMAB
     Indication: Psoriatic arthropathy
     Dosage: ALSO RECEIVED ON 01-JUL-2020?EXPIRY: 31-JUL-2024?PATIENT RECEIVED 400 MG DOSE
     Route: 042
     Dates: start: 20200610
  2. REMICADE [Suspect]
     Active Substance: INFLIXIMAB
     Dosage: PATIENT RECEIVED 400 MG DOSE?RECEIVED INFUSION ON 23-AUG-2021?EXPIRATION DATE: 31-OCT-2024?LAST INFU
     Route: 042
  3. INFLUENZA VIRUS VACCINE [Suspect]
     Active Substance: INFLUENZA VIRUS VACCINE
     Indication: Product used for unknown indication
     Dosage: FLU VACCINE
     Route: 065
  4. COVID-19 VACCINE [Concomitant]
     Indication: COVID-19 prophylaxis
     Route: 065
  5. METHOTREXATE [Concomitant]
     Active Substance: METHOTREXATE
     Indication: Psoriatic arthropathy
     Dosage: THE PATIENT HAD RECEIVED LAST TREATMENT OF METHOTREXATE ON JUL-2021.
     Route: 065

REACTIONS (11)
  - Asthma [Recovering/Resolving]
  - Joint swelling [Unknown]
  - COVID-19 [Recovered/Resolved]
  - Dysmenorrhoea [Not Recovered/Not Resolved]
  - Poor quality sleep [Unknown]
  - Arthralgia [Not Recovered/Not Resolved]
  - Back pain [Not Recovered/Not Resolved]
  - Nausea [Not Recovered/Not Resolved]
  - Abdominal pain upper [Not Recovered/Not Resolved]
  - Tonsillitis streptococcal [Recovered/Resolved]
  - Drug ineffective [Unknown]

NARRATIVE: CASE EVENT DATE: 20201215
